FAERS Safety Report 24648770 (Version 1)
Quarter: 2024Q4

REPORT INFORMATION
  Report Type: Spontaneous
  Country: IL (occurrence: IL)
  Receive Date: 20241121
  Receipt Date: 20241121
  Transmission Date: 20250114
  Serious: Yes (Other)
  Sender: NOVARTIS
  Company Number: IL-002147023-NVSC2024IL220939

PATIENT
  Age: 67 Year
  Sex: Female

DRUGS (2)
  1. LETROZOLE [Suspect]
     Active Substance: LETROZOLE
     Indication: Breast cancer metastatic
     Dosage: UNK
     Route: 065
     Dates: start: 201906
  2. LETROZOLE [Suspect]
     Active Substance: LETROZOLE
     Dosage: UNK
     Route: 065
     Dates: start: 201909

REACTIONS (7)
  - Full blood count decreased [Unknown]
  - Necrosis [Unknown]
  - Mediastinum neoplasm [Unknown]
  - Uterine polyp [Unknown]
  - Endometrial disorder [Unknown]
  - Leiomyoma [Unknown]
  - Ovarian cyst [Unknown]
